FAERS Safety Report 16312841 (Version 1)
Quarter: 2019Q2

REPORT INFORMATION
  Report Type: Report from Study
  Country: CO (occurrence: CO)
  Receive Date: 20190515
  Receipt Date: 20190515
  Transmission Date: 20190711
  Serious: Yes (Other)
  Sender: FDA-Public Use
  Company Number: CO-ACTELION-A-CH2019-186618

PATIENT
  Age: 13 Year
  Sex: Male
  Weight: 26 kg

DRUGS (2)
  1. ZAVESCA [Suspect]
     Active Substance: MIGLUSTAT
     Indication: GAUCHER^S DISEASE TYPE I
     Dosage: 10 MG, QD
     Route: 048
     Dates: start: 20190406
  2. ZAVESCA [Suspect]
     Active Substance: MIGLUSTAT
     Indication: NIEMANN-PICK DISEASE
     Dosage: 10 MG, QD
     Route: 048
     Dates: start: 20160429, end: 20190401

REACTIONS (6)
  - Seizure [Not Recovered/Not Resolved]
  - Product dose omission [Unknown]
  - Diarrhoea [Recovering/Resolving]
  - Headache [Not Recovered/Not Resolved]
  - Pallor [Unknown]
  - Product supply issue [Unknown]

NARRATIVE: CASE EVENT DATE: 2017
